FAERS Safety Report 7337539-5 (Version None)
Quarter: 2011Q1

REPORT INFORMATION
  Report Type: 
  Country: None (occurrence: None)
  Receive Date: 20110308
  Receipt Date: 20110211
  Transmission Date: 20110831
  Serious: Yes (Death, Other)
  Sender: FDA-Public Use
  Company Number: US-BAYER-201010475NA

PATIENT
  Sex: Male
  Weight: 80.726 kg

DRUGS (21)
  1. FISH OIL [Concomitant]
     Indication: PRODUCT USED FOR UNKNOWN INDICATION
     Dosage: 500 MG, BID
  2. HEPARIN [Concomitant]
     Indication: PRODUCT USED FOR UNKNOWN INDICATION
     Dosage: UNK
     Dates: start: 20071003, end: 20071003
  3. CONTRAST MEDIA [Concomitant]
     Indication: CORONARY ANGIOPLASTY
     Dosage: UNK
     Dates: start: 20070524, end: 20070524
  4. KETAMINE HCL [Concomitant]
     Indication: PRODUCT USED FOR UNKNOWN INDICATION
     Dosage: UNK
     Route: 042
     Dates: start: 20071003
  5. ZOCOR [Concomitant]
     Indication: PRODUCT USED FOR UNKNOWN INDICATION
     Dosage: 40 MG, QD
  6. ASPIRIN [Suspect]
     Indication: PRODUCT USED FOR UNKNOWN INDICATION
     Dosage: 325 MG, QD
  7. LASIX [Concomitant]
     Indication: PRODUCT USED FOR UNKNOWN INDICATION
     Dosage: 20 MG, BID
  8. PAVULON [Concomitant]
     Indication: PRODUCT USED FOR UNKNOWN INDICATION
     Dosage: UNK
     Route: 042
     Dates: start: 20071003
  9. DIPRIVAN [Concomitant]
     Indication: PRODUCT USED FOR UNKNOWN INDICATION
     Dosage: UNK
     Route: 042
     Dates: start: 20071003
  10. PLATELETS [Concomitant]
     Indication: CORONARY ARTERY BYPASS
     Dosage: 2 U, UNK
     Dates: start: 20071003, end: 20071003
  11. TRASYLOL [Suspect]
     Indication: CORONARY ARTERY BYPASS
     Dosage: 100 CC BOLUS FOLLOWED BY 25 CC/HR, 100 CC IN PUMP PRIME
     Route: 042
     Dates: start: 20071003, end: 20071003
  12. PLAVIX [Concomitant]
     Indication: PRODUCT USED FOR UNKNOWN INDICATION
     Dosage: 75 MG, QD
     Route: 048
  13. PROTAMINE SULFATE [Concomitant]
     Indication: PRODUCT USED FOR UNKNOWN INDICATION
     Dosage: UNK
     Route: 042
     Dates: start: 20071003, end: 20071003
  14. VISIPAQUE [Concomitant]
     Indication: CATHETERISATION CARDIAC
     Dosage: 150 ML, UNK
     Dates: start: 20070928, end: 20070928
  15. EPINEPHRINE [Concomitant]
     Indication: PRODUCT USED FOR UNKNOWN INDICATION
     Dosage: UNK
     Route: 042
     Dates: start: 20071003
  16. PLASMA [Concomitant]
     Indication: CORONARY ARTERY BYPASS
     Dosage: 2 U, UNK
     Dates: start: 20071003, end: 20071003
  17. DIGOXIN [Concomitant]
     Indication: PRODUCT USED FOR UNKNOWN INDICATION
     Dosage: 0.125 MG, QD
     Route: 048
  18. COREG [Concomitant]
     Indication: PRODUCT USED FOR UNKNOWN INDICATION
     Dosage: 10 MG, QD
  19. DOPAMINE [Concomitant]
     Indication: PRODUCT USED FOR UNKNOWN INDICATION
     Route: 042
  20. ANCEF [Concomitant]
     Indication: PRODUCT USED FOR UNKNOWN INDICATION
     Dosage: UNK
     Route: 042
     Dates: start: 20071003
  21. ESMOLOL HCL [Concomitant]
     Indication: PRODUCT USED FOR UNKNOWN INDICATION
     Dosage: UNK
     Dates: start: 20071003

REACTIONS (31)
  - DEATH [None]
  - RENAL FAILURE ACUTE [None]
  - RENAL FAILURE [None]
  - ACUTE MYOCARDIAL INFARCTION [None]
  - FEAR [None]
  - DISSEMINATED INTRAVASCULAR COAGULATION [None]
  - ARRHYTHMIA SUPRAVENTRICULAR [None]
  - MULTI-ORGAN FAILURE [None]
  - CEREBROVASCULAR ACCIDENT [None]
  - UNEVALUABLE EVENT [None]
  - CARDIOGENIC SHOCK [None]
  - HYPOTENSION [None]
  - PULMONARY HYPERTENSION [None]
  - THROMBOCYTOPENIA [None]
  - LIPASE INCREASED [None]
  - CARDIAC FAILURE ACUTE [None]
  - BLOOD CULTURE POSITIVE [None]
  - ASCITES [None]
  - ANHEDONIA [None]
  - ILEUS [None]
  - INTESTINAL ISCHAEMIA [None]
  - DEPRESSION [None]
  - ABDOMINAL DISTENSION [None]
  - PANCREATITIS [None]
  - LUNG INFILTRATION [None]
  - ANXIETY [None]
  - PAIN [None]
  - LIVER FUNCTION TEST ABNORMAL [None]
  - INJURY [None]
  - ACUTE RESPIRATORY FAILURE [None]
  - SEPTIC SHOCK [None]
